FAERS Safety Report 8601134-8 (Version None)
Quarter: 2012Q3

REPORT INFORMATION
  Report Type: 
  Country: None (occurrence: None)
  Receive Date: 20120817
  Receipt Date: 20120810
  Transmission Date: 20120928
  Serious: Yes (Hospitalization, Other)
  Sender: FDA-Public Use
  Company Number: PHHY2012JP060251

PATIENT
  Sex: Male
  Weight: 48 kg

DRUGS (9)
  1. CAPTOPRIL [Concomitant]
     Route: 048
  2. PURSENNID [Concomitant]
     Dates: start: 20110921
  3. TANATRIL [Concomitant]
     Dates: start: 20111024, end: 20111028
  4. IMATINIB MESYLATE [Suspect]
     Dosage: 300 MG, DAILY
     Route: 048
     Dates: start: 20111028
  5. LANSOPRAZOLE [Concomitant]
     Route: 065
  6. MONILAC [Concomitant]
     Dates: start: 20110920, end: 20111031
  7. LANSOPRAZOLE [Concomitant]
     Dosage: 15 MG, UNK
     Route: 048
     Dates: start: 20110920
  8. LENDORMIN [Concomitant]
     Dates: start: 20111019, end: 20111210
  9. IMATINIB MESYLATE [Suspect]
     Indication: GASTROINTESTINAL STROMAL TUMOUR
     Dosage: 400 MG DAILY
     Route: 048
     Dates: start: 20111024, end: 20111027

REACTIONS (6)
  - BLOOD CREATININE INCREASED [None]
  - TUMOUR LYSIS SYNDROME [None]
  - HEPATIC FUNCTION ABNORMAL [None]
  - GASTROINTESTINAL STROMAL TUMOUR [None]
  - NEOPLASM RECURRENCE [None]
  - AMMONIA INCREASED [None]
